FAERS Safety Report 5689146-8 (Version None)
Quarter: 2008Q1

REPORT INFORMATION
  Report Type: 
  Country: None (occurrence: None)
  Receive Date: 20080331
  Receipt Date: 20080325
  Transmission Date: 20080703
  Serious: Yes (Life-Threatening)
  Sender: FDA-Public Use
  Company Number: IT-SANOFI-SYNTHELABO-A06200800120

PATIENT
  Sex: Male

DRUGS (3)
  1. ELOXATIN [Suspect]
     Indication: COLON CANCER STAGE III
     Route: 041
     Dates: start: 20080228, end: 20080228
  2. CALCIO LEVOFOLINATO TEVA [Concomitant]
     Indication: COLON CANCER STAGE III
     Route: 041
     Dates: start: 20080228, end: 20080228
  3. FLUOROURACILE TEVA [Concomitant]
     Indication: COLON CANCER STAGE III
     Route: 041
     Dates: start: 20080228, end: 20080228

REACTIONS (1)
  - LARYNGOSPASM [None]
